FAERS Safety Report 23783630 (Version 1)
Quarter: 2024Q2

REPORT INFORMATION
  Report Type: Spontaneous
  Country: SK (occurrence: SK)
  Receive Date: 20240425
  Receipt Date: 20240425
  Transmission Date: 20240715
  Serious: Yes (Death, Hospitalization)
  Sender: FDA-Public Use
  Company Number: SK-VERTEX PHARMACEUTICALS-2024-007002

PATIENT
  Sex: Female

DRUGS (3)
  1. ELEXACAFTOR\IVACAFTOR\TEZACAFTOR [Suspect]
     Active Substance: ELEXACAFTOR\IVACAFTOR\TEZACAFTOR
     Indication: Cystic fibrosis
     Dosage: 2 TABS IN AM
     Route: 048
     Dates: start: 20220222
  2. ELEXACAFTOR\IVACAFTOR\TEZACAFTOR [Suspect]
     Active Substance: ELEXACAFTOR\IVACAFTOR\TEZACAFTOR
     Dosage: 2 TABS IN AM, TWICE A WEEK
     Route: 048
     Dates: start: 202404, end: 20240417
  3. KALYDECO [Suspect]
     Active Substance: IVACAFTOR
     Indication: Cystic fibrosis
     Dosage: 1 TAB IN THE PM
     Route: 048
     Dates: start: 20220222, end: 20240417

REACTIONS (3)
  - Mycobacterium abscessus infection [Fatal]
  - Candida test positive [Not Recovered/Not Resolved]
  - Enterococcus test positive [Not Recovered/Not Resolved]
